FAERS Safety Report 6983933-1 (Version None)
Quarter: 2010Q3

REPORT INFORMATION
  Report Type: 
  Country: None (occurrence: None)
  Receive Date: 20100914
  Receipt Date: 20090622
  Transmission Date: 20110219
  Serious: Yes (Other)
  Sender: FDA-Public Use
  Company Number: US-WYE-H09102209

PATIENT
  Sex: Male
  Weight: 72.64 kg

DRUGS (8)
  1. PRISTIQ [Suspect]
     Indication: DEPRESSION
     Route: 048
     Dates: start: 20090409, end: 20090422
  2. PRISTIQ [Suspect]
     Route: 048
     Dates: start: 20090423, end: 20090101
  3. PRISTIQ [Suspect]
     Dosage: UNKNOWN
     Route: 048
     Dates: start: 20090101
  4. ALPRAZOLAM [Concomitant]
     Dosage: UNKNOWN DOSE DAILY
     Route: 048
  5. PROTONIX [Concomitant]
     Dosage: UNKNOWN DAILY DOSE
     Route: 048
  6. VITAMINS [Concomitant]
     Dosage: UNKNOWN DAILY DOSE
     Route: 048
  7. DARVOCET-N 100 [Concomitant]
     Dosage: UNKNOWN DAILY DOSE
     Route: 048
  8. AMBIEN [Concomitant]
     Dosage: UNKNOWN DOSE AT BEDTIME
     Route: 048

REACTIONS (4)
  - BLOOD PRESSURE INCREASED [None]
  - CRYING [None]
  - EMOTIONAL DISORDER [None]
  - HEART RATE INCREASED [None]
